FAERS Safety Report 6073866-X (Version None)
Quarter: 2009Q1

REPORT INFORMATION
  Report Type: 
  Country: None (occurrence: None)
  Receive Date: 20090211
  Receipt Date: 20090202
  Transmission Date: 20090719
  Serious: Yes (Hospitalization)
  Sender: FDA-Public Use
  Company Number: FR-PFIZER INC-2009165893

PATIENT

DRUGS (7)
  1. RELPAX [Suspect]
     Indication: HEADACHE
     Dosage: 2 DOSAGE FORM
     Route: 048
     Dates: end: 20081127
  2. TOPALGIC [Suspect]
     Indication: HEADACHE
     Dosage: 2 DOSAGE FORM
     Route: 048
     Dates: end: 20081127
  3. BI-PROFENID [Suspect]
     Indication: HEADACHE
     Dosage: 1 DOSAGE FORM
     Route: 048
     Dates: end: 20081127
  4. OMEPRAZOLE [Concomitant]
  5. PULMICORT-100 [Concomitant]
  6. VENTOLIN [Concomitant]
     Dosage: UNK
  7. PROPOFAN [Concomitant]

REACTIONS (2)
  - CONDITION AGGRAVATED [None]
  - HEADACHE [None]
